APPROVED DRUG PRODUCT: MEPERIDINE HYDROCHLORIDE
Active Ingredient: MEPERIDINE HYDROCHLORIDE
Strength: 100MG
Dosage Form/Route: TABLET;ORAL
Application: A040446 | Product #002
Applicant: SUN PHARMACEUTICAL INDUSTRIES INC
Approved: Aug 8, 2002 | RLD: No | RS: No | Type: DISCN